FAERS Safety Report 13477319 (Version 3)
Quarter: 2017Q3

REPORT INFORMATION
  Report Type: Spontaneous
  Country: US (occurrence: US)
  Receive Date: 20170425
  Receipt Date: 20170710
  Transmission Date: 20171127
  Serious: No
  Sender: FDA-Public Use
  Company Number: PHEH2017US012061

PATIENT
  Sex: Female
  Weight: 58.96 kg

DRUGS (2)
  1. ZOFRAN [Suspect]
     Active Substance: ONDANSETRON HYDROCHLORIDE
     Indication: VOMITING IN PREGNANCY
     Dosage: UNK
     Route: 048
     Dates: start: 20041109, end: 20050410
  2. ONDANSETRON [Suspect]
     Active Substance: ONDANSETRON
     Indication: VOMITING IN PREGNANCY
     Dosage: 04 MG, TID
     Route: 048
     Dates: start: 20041109, end: 20050410

REACTIONS (4)
  - Emotional distress [Unknown]
  - Product use in unapproved indication [Unknown]
  - Injury [Unknown]
  - Maternal exposure during pregnancy [Unknown]
